FAERS Safety Report 24601382 (Version 3)
Quarter: 2024Q4

REPORT INFORMATION
  Report Type: Spontaneous
  Country: US (occurrence: US)
  Receive Date: 20241111
  Receipt Date: 20241219
  Transmission Date: 20250115
  Serious: No
  Sender: ROCHE
  Company Number: US-ROCHE-10000127009

PATIENT
  Age: 35 Year
  Sex: Female
  Weight: 52.16 kg

DRUGS (13)
  1. XOLAIR PFS [Suspect]
     Active Substance: OMALIZUMAB
     Indication: Urticaria
     Dosage: (2) 150 MG SYRINGES
     Route: 065
     Dates: start: 202403
  2. XOLAIR PFS [Suspect]
     Active Substance: OMALIZUMAB
  3. PREDNISONE [Concomitant]
     Active Substance: PREDNISONE
     Indication: Anaphylactic reaction
     Dosage: TAKES 20 MG TABLETS AND CAN TAKE UP TO 40 MG; STARTED BEFORE XOLAIR
     Route: 048
  4. BENADRYL [Concomitant]
     Active Substance: DIPHENHYDRAMINE HYDROCHLORIDE
     Indication: Anaphylactic reaction
     Dosage: STARTED BEFORE XOLAIR
     Route: 048
  5. EPIPEN [Concomitant]
     Active Substance: EPINEPHRINE
     Indication: Anaphylactic reaction
     Dosage: STARTED BEFORE XOLAIR
     Route: 065
  6. ALBUTEROL SULFATE [Concomitant]
     Active Substance: ALBUTEROL SULFATE
     Indication: Asthma
     Dosage: TAKES 1-2 PUFFS EVERY 4 HOURS AS NEEDED; STARTED BEFORE XOLAIR
     Route: 048
  7. TEMAZEPAM [Concomitant]
     Active Substance: TEMAZEPAM
     Dosage: TAKES BEFORE BED; STARTED BEFORE XOLAIR
     Route: 048
  8. VIMPAT [Concomitant]
     Active Substance: LACOSAMIDE
     Indication: Seizure
     Dosage: STARTED BEFORE XOLAIR
     Route: 048
  9. KEPPRA XR [Concomitant]
     Active Substance: LEVETIRACETAM
     Indication: Seizure
     Dosage: (2) 500 MG TABLETS; STARTED BEFORE XOLAIR
     Route: 048
  10. SYMBICORT [Concomitant]
     Active Substance: BUDESONIDE\FORMOTEROL FUMARATE DIHYDRATE
     Indication: Asthma
     Dosage: 160-4.5 MCG DOSE; 2 PUFFS EACH TIME; STARTED BEFORE XOLAIR
     Route: 048
  11. MONTELUKAST [Concomitant]
     Active Substance: MONTELUKAST SODIUM
     Indication: Hypersensitivity
     Dosage: STARTED BEFORE XOLAIR
     Route: 048
  12. PRILOSEC [Concomitant]
     Active Substance: OMEPRAZOLE MAGNESIUM
     Indication: Dyspepsia
     Dosage: STARTED BEFORE XOLAIR
     Route: 048
  13. ZYRTEC [Concomitant]
     Active Substance: CETIRIZINE HYDROCHLORIDE
     Indication: Hypersensitivity
     Dosage: (2) 10 MG TABS; STARTED BEFORE XOLAIR
     Route: 048

REACTIONS (4)
  - Underdose [Unknown]
  - Hypertension [Not Recovered/Not Resolved]
  - Needle issue [Unknown]
  - Contusion [Unknown]

NARRATIVE: CASE EVENT DATE: 20241031
